FAERS Safety Report 16047377 (Version 1)
Quarter: 2019Q2

REPORT INFORMATION
  Report Type: Spontaneous
  Country: US (occurrence: US)
  Receive Date: 20190307
  Receipt Date: 20190307
  Transmission Date: 20190711
  Serious: Yes (Other)
  Sender: FDA-Public Use
  Company Number: None

PATIENT
  Age: 71 Year
  Sex: Female

DRUGS (1)
  1. EPCLUSA [Suspect]
     Active Substance: SOFOSBUVIR\VELPATASVIR
     Indication: CHRONIC HEPATITIS
     Route: 048
     Dates: start: 20190226, end: 20190307

REACTIONS (2)
  - Mouth haemorrhage [None]
  - Stomatitis [None]

NARRATIVE: CASE EVENT DATE: 20190307
